FAERS Safety Report 4521653-3 (Version None)
Quarter: 2004Q4

REPORT INFORMATION
  Report Type: 
  Country: None (occurrence: None)
  Receive Date: 20041206
  Receipt Date: 20041130
  Transmission Date: 20050328
  Serious: Yes (Other)
  Sender: FDA-Public Use
  Company Number: 200410405BFR

PATIENT
  Age: 68 Year
  Sex: Male

DRUGS (15)
  1. STALTOR (CERIVASTATIN) [Suspect]
     Indication: HYPERLIPIDAEMIA
     Dosage: SEE IMAGE
     Route: 048
     Dates: start: 19980901, end: 19990301
  2. STALTOR (CERIVASTATIN) [Suspect]
     Indication: HYPERLIPIDAEMIA
     Dosage: SEE IMAGE
     Route: 048
     Dates: start: 19990914, end: 19990922
  3. STALTOR (CERIVASTATIN) [Suspect]
     Indication: HYPERLIPIDAEMIA
     Dosage: SEE IMAGE
     Route: 048
     Dates: start: 19990301
  4. LIPANTHYL [Concomitant]
  5. BEFIZAL [Concomitant]
  6. MAXEPA [Concomitant]
  7. FONLIPOL [Concomitant]
  8. MEDIATOR [Concomitant]
  9. SERMION [Concomitant]
  10. OLEA EUROPAE [Concomitant]
  11. TOCO [Concomitant]
  12. APRANAX [Concomitant]
  13. ZYLORIC [Concomitant]
  14. ASPIRIN [Concomitant]
  15. CLAMOXYL [Concomitant]

REACTIONS (11)
  - ARTHRALGIA [None]
  - BACK PAIN [None]
  - BLOOD CREATINE PHOSPHOKINASE INCREASED [None]
  - DISCOMFORT [None]
  - LYME DISEASE [None]
  - MUSCLE CRAMP [None]
  - MYALGIA [None]
  - NECK PAIN [None]
  - OSTEOARTHRITIS [None]
  - PARAESTHESIA [None]
  - POLYNEUROPATHY [None]
